FAERS Safety Report 5981385-1 (Version None)
Quarter: 2008Q4

REPORT INFORMATION
  Report Type: 
  Country: None (occurrence: None)
  Receive Date: 20081128
  Receipt Date: 20081111
  Transmission Date: 20090506
  Serious: Yes (Other)
  Sender: FDA-Public Use
  Company Number: 107#08#2008-05540

PATIENT
  Age: 61 Year
  Sex: Male

DRUGS (7)
  1. MIRTAZAPINE [Suspect]
     Indication: DECREASED APPETITE
     Dosage: 15 MG
  2. MIRTAZAPINE [Suspect]
     Indication: FLAT AFFECT
     Dosage: 15 MG
  3. MIRTAZAPINE [Suspect]
     Indication: SOMNOLENCE
     Dosage: 15 MG
  4. METOFORMIN (METOFORMIN) [Concomitant]
  5. GLICLAZIDE (GLICLAZIDE) [Concomitant]
  6. IRBESARTAN [Concomitant]
  7. HYDROCHLOROTHIAZIDE [Concomitant]

REACTIONS (3)
  - HYPONATRAEMIA [None]
  - SOMNOLENCE [None]
  - SUBDURAL HAEMATOMA [None]
